FAERS Safety Report 18167763 (Version 1)
Quarter: 2020Q3

REPORT INFORMATION
  Report Type: Spontaneous
  Country: US (occurrence: US)
  Receive Date: 20200818
  Receipt Date: 20200818
  Transmission Date: 20201103
  Serious: No
  Sender: FDA-Public Use
  Company Number: US-OTSUKA-2020_010624

PATIENT
  Sex: Male

DRUGS (2)
  1. ABILIFY [Suspect]
     Active Substance: ARIPIPRAZOLE
     Indication: SCHIZOPHRENIA
     Dosage: 5 MG, QD
     Route: 065
     Dates: start: 202001
  2. ABILIFY [Suspect]
     Active Substance: ARIPIPRAZOLE
     Dosage: 2 MG, UNK
     Route: 065
     Dates: start: 2020

REACTIONS (5)
  - Restlessness [Recovering/Resolving]
  - Akathisia [Recovering/Resolving]
  - Movement disorder [Not Recovered/Not Resolved]
  - Energy increased [Not Recovered/Not Resolved]
  - Incorrect dose administered [Unknown]

NARRATIVE: CASE EVENT DATE: 202001
